FAERS Safety Report 10248200 (Version 1)
Quarter: 2014Q2

REPORT INFORMATION
  Report Type: Spontaneous
  Country: GB (occurrence: GB)
  Receive Date: 20140620
  Receipt Date: 20140620
  Transmission Date: 20141212
  Serious: Yes (Other)
  Sender: FDA-Public Use
  Company Number: GB-ROCHE-1421564

PATIENT
  Sex: 0

DRUGS (2)
  1. AVASTIN [Suspect]
     Indication: COLON CANCER
     Dosage: 25MG PER ML SOLUTION
     Route: 065
  2. XELODA [Suspect]
     Indication: COLON CANCER
     Route: 065

REACTIONS (1)
  - Dermatomyositis [Unknown]
